FAERS Safety Report 4500833-7 (Version None)
Quarter: 2004Q4

REPORT INFORMATION
  Report Type: 
  Country: None (occurrence: None)
  Receive Date: 20041112
  Receipt Date: 20041105
  Transmission Date: 20050328
  Serious: Yes (Hospitalization)
  Sender: FDA-Public Use
  Company Number: 2004GB02567

PATIENT
  Age: 48 Year
  Sex: Female
  Weight: 92.5 kg

DRUGS (3)
  1. CRESTOR [Suspect]
     Dosage: 10 MG HS PO
     Route: 048
     Dates: start: 20040201, end: 20041029
  2. ATENOLOL [Concomitant]
  3. LACTULOSE [Concomitant]

REACTIONS (11)
  - ASTHENIA [None]
  - BALANCE DISORDER [None]
  - BLOOD FOLATE DECREASED [None]
  - CONDITION AGGRAVATED [None]
  - CONSTIPATION [None]
  - CSF PROTEIN INCREASED [None]
  - DECREASED APPETITE [None]
  - HYPOTENSION [None]
  - INTERMITTENT CLAUDICATION [None]
  - NEUROPATHY PERIPHERAL [None]
  - VOMITING [None]
